FAERS Safety Report 16095987 (Version 1)
Quarter: 2019Q1

REPORT INFORMATION
  Report Type: Spontaneous
  Country: US (occurrence: US)
  Receive Date: 20190320
  Receipt Date: 20190320
  Transmission Date: 20190418
  Serious: No
  Sender: FDA-Public Use
  Company Number: US-GLAXOSMITHKLINE-US2019044341

PATIENT

DRUGS (2)
  1. NORMAL SALINE [Suspect]
     Active Substance: SODIUM CHLORIDE
  2. FLOLAN [Suspect]
     Active Substance: EPOPROSTENOL SODIUM
     Indication: PERIPHERAL ISCHAEMIA
     Dosage: UNK

REACTIONS (2)
  - Off label use [Unknown]
  - Labelled drug-drug interaction medication error [Unknown]
